FAERS Safety Report 8308226-1 (Version None)
Quarter: 2012Q2

REPORT INFORMATION
  Report Type: 
  Country: None (occurrence: None)
  Receive Date: 20120424
  Receipt Date: 20120417
  Transmission Date: 20120825
  Serious: Yes (Other)
  Sender: FDA-Public Use
  Company Number: IT-PFIZER INC-2012095899

PATIENT
  Age: 87 Year
  Sex: Female

DRUGS (1)
  1. SUNITINIB MALATE [Suspect]
     Dosage: 50 MG, DAILY IN CYCLES OF 4 WEEKS WITH A TWO-WEEK INTERVAL

REACTIONS (1)
  - BONE MARROW TOXICITY [None]
